FAERS Safety Report 23070386 (Version 2)
Quarter: 2023Q4

REPORT INFORMATION
  Report Type: Spontaneous
  Country: US (occurrence: US)
  Receive Date: 20231016
  Receipt Date: 20231018
  Transmission Date: 20240109
  Serious: Yes (Hospitalization, Other)
  Sender: FDA-Public Use
  Company Number: US-PFIZER INC-PV202300152275

PATIENT
  Age: 73 Year
  Sex: Female
  Weight: 69.206 kg

DRUGS (2)
  1. BOSULIF [Suspect]
     Active Substance: BOSUTINIB MONOHYDRATE
     Indication: Chronic myeloid leukaemia
     Dosage: 400 MG
  2. BOSULIF [Suspect]
     Active Substance: BOSUTINIB MONOHYDRATE
     Dosage: 300 MG, DAILY (3 TABLET ORALLY EVERY DAY)
     Route: 048
     Dates: start: 202205

REACTIONS (4)
  - Colitis [Unknown]
  - Crohn^s disease [Not Recovered/Not Resolved]
  - Iron deficiency [Unknown]
  - Diarrhoea [Not Recovered/Not Resolved]
